FAERS Safety Report 9190873 (Version 2)
Quarter: 2013Q2

REPORT INFORMATION
  Report Type: Report from Study
  Country: GB (occurrence: GB)
  Receive Date: 20130326
  Receipt Date: 20130508
  Transmission Date: 20140414
  Serious: Yes (Hospitalization, Other)
  Sender: FDA-Public Use
  Company Number: GB-ROCHE-1203908

PATIENT
  Age: 58 Year
  Sex: Male
  Weight: 92 kg

DRUGS (3)
  1. TOCILIZUMAB [Suspect]
     Indication: RHEUMATOID ARTHRITIS
     Dosage: LAST DOSE PRIOR TO SAE : 27/DEC/2012
     Route: 065
     Dates: start: 20111005
  2. METHOTREXATE [Concomitant]
  3. SULPHASALAZINE [Concomitant]

REACTIONS (2)
  - Implant site reaction [Unknown]
  - Conjunctival granuloma [Unknown]
